FAERS Safety Report 8811144 (Version 1)
Quarter: 2012Q4

REPORT INFORMATION
  Report Type: Spontaneous
  Country: US (occurrence: None)
  Receive Date: 20120925
  Receipt Date: 20120925
  Transmission Date: 20130627
  Serious: Yes (Other)
  Sender: FDA-Public Use
  Company Number: None

PATIENT
  Age: 70 Year
  Sex: Female
  Weight: 79.38 kg

DRUGS (1)
  1. LEVOFLOXACIN [Suspect]
     Indication: BRONCHIECTASIS
     Route: 048
     Dates: start: 201202, end: 201209

REACTIONS (6)
  - Abdominal pain upper [None]
  - Swollen tongue [None]
  - Tongue disorder [None]
  - Lip swelling [None]
  - Oropharyngeal pain [None]
  - Pharyngeal oedema [None]
